FAERS Safety Report 7651136-3 (Version None)
Quarter: 2011Q3

REPORT INFORMATION
  Report Type: 
  Country: None (occurrence: None)
  Receive Date: 20110802
  Receipt Date: 20110721
  Transmission Date: 20111222
  Serious: Yes (Hospitalization)
  Sender: FDA-Public Use
  Company Number: NZ-ELI_LILLY_AND_COMPANY-NZ201107006324

PATIENT
  Age: 45 Year
  Sex: Female

DRUGS (1)
  1. HUMALOG [Suspect]
     Dosage: 45 U, UNK

REACTIONS (4)
  - HYPOGLYCAEMIA [None]
  - DRUG DISPENSING ERROR [None]
  - WRONG DRUG ADMINISTERED [None]
  - DELAYED ENGRAFTMENT [None]
